FAERS Safety Report 15320617 (Version 59)
Quarter: 2023Q2

REPORT INFORMATION
  Report Type: Other
  Country: CA (occurrence: None)
  Receive Date: 20180827
  Receipt Date: 20230628
  Transmission Date: 20230721
  Serious: Yes (Other)
  Sender: FDA-Public Use
  Company Number: CA-ROCHE-2172109

PATIENT
  Age: 71 Year
  Sex: Female
  Weight: 53 kg

DRUGS (7)
  1. ACTEMRA [Suspect]
     Active Substance: TOCILIZUMAB
     Indication: Rheumatoid arthritis
     Dosage: NO PIRS RECEIVED
     Route: 042
     Dates: start: 20180423, end: 20180525
  2. ACTEMRA [Suspect]
     Active Substance: TOCILIZUMAB
     Route: 042
     Dates: start: 20180626
  3. PREDNISONE [Concomitant]
     Active Substance: PREDNISONE
     Indication: Product used for unknown indication
  4. EFFEXOR [Concomitant]
     Active Substance: VENLAFAXINE HYDROCHLORIDE
     Indication: Product used for unknown indication
  5. DICLOFENAC [Concomitant]
     Active Substance: DICLOFENAC
     Indication: Product used for unknown indication
  6. VALTREX [Concomitant]
     Active Substance: VALACYCLOVIR HYDROCHLORIDE
     Indication: Product used for unknown indication
  7. RAMIPRIL [Concomitant]
     Active Substance: RAMIPRIL

REACTIONS (46)
  - Depression [Not Recovered/Not Resolved]
  - Cataract [Not Recovered/Not Resolved]
  - Animal bite [Unknown]
  - Scratch [Recovering/Resolving]
  - Blood pressure increased [Unknown]
  - Oxygen saturation decreased [Unknown]
  - Heart rate decreased [Unknown]
  - Blood pressure systolic increased [Unknown]
  - Disability assessment scale score increased [Recovering/Resolving]
  - Depressed mood [Recovered/Resolved]
  - Crying [Recovered/Resolved]
  - Malaise [Not Recovered/Not Resolved]
  - Nausea [Unknown]
  - Diarrhoea [Not Recovered/Not Resolved]
  - Headache [Not Recovered/Not Resolved]
  - Sinus congestion [Not Recovered/Not Resolved]
  - Ear pain [Unknown]
  - Skin neoplasm excision [Unknown]
  - Gingival discomfort [Recovered/Resolved]
  - Nasopharyngitis [Unknown]
  - Chest discomfort [Not Recovered/Not Resolved]
  - Fatigue [Not Recovered/Not Resolved]
  - Arthralgia [Not Recovered/Not Resolved]
  - Rheumatoid arthritis [Not Recovered/Not Resolved]
  - Oropharyngeal pain [Recovering/Resolving]
  - Off label use [Unknown]
  - Blood pressure diastolic decreased [Unknown]
  - Infection [Unknown]
  - Blood pressure systolic abnormal [Unknown]
  - Weight decreased [Not Recovered/Not Resolved]
  - Fall [Unknown]
  - Skin laceration [Recovering/Resolving]
  - Wound [Recovering/Resolving]
  - Bloody discharge [Unknown]
  - Limb injury [Unknown]
  - Skin ulcer [Unknown]
  - Fungal infection [Unknown]
  - Body temperature decreased [Unknown]
  - Weight increased [Unknown]
  - Cataract operation [Unknown]
  - Mouth ulceration [Not Recovered/Not Resolved]
  - Joint injury [Unknown]
  - Ear, nose and throat infection [Unknown]
  - Tympanic membrane perforation [Unknown]
  - Stress [Unknown]
  - Blood pressure diastolic abnormal [Unknown]

NARRATIVE: CASE EVENT DATE: 20180423
